FAERS Safety Report 17404767 (Version 1)
Quarter: 2020Q1

REPORT INFORMATION
  Report Type: Spontaneous
  Country: US (occurrence: US)
  Receive Date: 20200211
  Receipt Date: 20200211
  Transmission Date: 20200409
  Serious: No
  Sender: FDA-Public Use
  Company Number: US-PURDUE-USA-2019-0148492

PATIENT
  Sex: Female

DRUGS (3)
  1. KLONOPIN [Suspect]
     Active Substance: CLONAZEPAM
     Indication: ANXIETY
     Dosage: UNK
     Route: 048
  2. BUPRENORPHINE (SIMILAR TO NDA 21-306) [Suspect]
     Active Substance: BUPRENORPHINE
     Indication: MUSCLE INJURY
     Dosage: 15 MCG/HR, WEEKLY
     Route: 062
  3. PERCOCET                           /00446701/ [Suspect]
     Active Substance: ACETAMINOPHEN\OXYCODONE HYDROCHLORIDE\OXYCODONE TEREPHTHALATE
     Indication: MUSCLE INJURY
     Dosage: UNK
     Route: 048

REACTIONS (16)
  - Nausea [Recovered/Resolved]
  - Therapeutic product effect decreased [Unknown]
  - Chills [Unknown]
  - Frequent bowel movements [Not Recovered/Not Resolved]
  - Cardiac flutter [Recovered/Resolved]
  - Malaise [Unknown]
  - Palpitations [Recovered/Resolved]
  - Feeling abnormal [Unknown]
  - Withdrawal syndrome [Unknown]
  - Stomatitis [Not Recovered/Not Resolved]
  - Vision blurred [Recovered/Resolved]
  - Hyperhidrosis [Unknown]
  - Inappropriate schedule of product administration [Unknown]
  - Oral fungal infection [Not Recovered/Not Resolved]
  - Anxiety [Recovered/Resolved]
  - Headache [Not Recovered/Not Resolved]

NARRATIVE: CASE EVENT DATE: 20190924
